FAERS Safety Report 9154045 (Version 2)
Quarter: 2013Q2

REPORT INFORMATION
  Report Type: Spontaneous
  Country: US (occurrence: US)
  Receive Date: 20130311
  Receipt Date: 20130411
  Transmission Date: 20140414
  Serious: No
  Sender: FDA-Public Use
  Company Number: US-PFIZER INC-2013077992

PATIENT
  Age: 55 Year
  Sex: Female
  Weight: 68.03 kg

DRUGS (6)
  1. XELJANZ [Suspect]
     Dosage: 5 MG, 2X/DAY
     Route: 048
  2. AMOXIL [Concomitant]
     Dosage: 500 MG, UNK
  3. PREMPRO [Concomitant]
     Dosage: ESTROGENS CONJUGATED 0.3, MEDROXYPROGESTERONE ACETATE 1.5
  4. LISINOPRIL [Concomitant]
     Dosage: 30 MG, UNK
  5. RANITIDINE [Concomitant]
     Dosage: 300 MG, UNK
  6. ADVIL [Concomitant]
     Dosage: 200 MG, UNK

REACTIONS (2)
  - Headache [Unknown]
  - Nausea [Unknown]
